FAERS Safety Report 20934210 (Version 1)
Quarter: 2022Q2

REPORT INFORMATION
  Report Type: Spontaneous
  Country: JP (occurrence: None)
  Receive Date: 20220608
  Receipt Date: 20220608
  Transmission Date: 20220721
  Serious: Yes (Death, Hospitalization, Other)
  Sender: FDA-Public Use
  Company Number: 2022A209949

PATIENT
  Age: 75 Year
  Sex: Female
  Weight: 44 kg

DRUGS (3)
  1. TAGRISSO [Suspect]
     Active Substance: OSIMERTINIB
     Indication: Non-small cell lung cancer
     Route: 048
     Dates: start: 20191227, end: 20210719
  2. TAGRISSO [Suspect]
     Active Substance: OSIMERTINIB
     Indication: Non-small cell lung cancer
     Route: 048
     Dates: start: 20210720, end: 20210913
  3. TAGRISSO [Suspect]
     Active Substance: OSIMERTINIB
     Indication: Non-small cell lung cancer
     Route: 048
     Dates: start: 20210914, end: 20211224

REACTIONS (12)
  - Death [Fatal]
  - Deafness bilateral [Unknown]
  - Gait disturbance [Unknown]
  - Femur fracture [Unknown]
  - Facial paralysis [Unknown]
  - Metastases to meninges [Unknown]
  - Diarrhoea [Unknown]
  - Skin disorder [Unknown]
  - Paronychia [Unknown]
  - Pigmentation disorder [Unknown]
  - Taste disorder [Unknown]
  - Decreased appetite [Unknown]

NARRATIVE: CASE EVENT DATE: 20200106
